FAERS Safety Report 9274652 (Version 1)
Quarter: 2013Q2

REPORT INFORMATION
  Report Type: Spontaneous
  Country: US (occurrence: None)
  Receive Date: 20130430
  Receipt Date: 20130430
  Transmission Date: 20140414
  Serious: Yes (Hospitalization)
  Sender: FDA-Public Use
  Company Number: None

PATIENT
  Age: 63 Year
  Sex: Female
  Weight: 78.34 kg

DRUGS (1)
  1. PACLITAXEL (TAXOL) [Suspect]
     Dates: end: 20130412

REACTIONS (5)
  - Fatigue [None]
  - Dehydration [None]
  - Malignant pleural effusion [None]
  - Pneumothorax [None]
  - Metastases to lung [None]
